FAERS Safety Report 8433568-9 (Version None)
Quarter: 2012Q2

REPORT INFORMATION
  Report Type: 
  Country: None (occurrence: None)
  Receive Date: 20120613
  Receipt Date: 20120607
  Transmission Date: 20120825
  Serious: Yes (Other)
  Sender: FDA-Public Use
  Company Number: CN-PFIZER INC-2012139349

PATIENT
  Age: 41 Year
  Sex: Male

DRUGS (1)
  1. CELEBREX [Suspect]
     Indication: PLEURISY
     Dosage: 200 MG, 2X/DAY
     Route: 048
     Dates: start: 20100104, end: 20100114

REACTIONS (3)
  - RASH [None]
  - ELECTROCARDIOGRAM QT PROLONGED [None]
  - PRURITUS [None]
